FAERS Safety Report 4869034-7 (Version None)
Quarter: 2005Q4

REPORT INFORMATION
  Report Type: 
  Country: None (occurrence: None)
  Receive Date: 20051223
  Receipt Date: 20051216
  Transmission Date: 20060501
  Serious: Yes (Life-Threatening, Other)
  Sender: FDA-Public Use
  Company Number: 2005-12-0902

PATIENT
  Age: 34 Year
  Sex: Male

DRUGS (16)
  1. RIBAVIRIN [Suspect]
     Indication: HEPATITIS C
     Dosage: UNK-600 MG*QD
     Route: 048
     Dates: start: 19980201, end: 19980401
  2. RIBAVIRIN [Suspect]
     Indication: HEPATITIS C
     Dosage: UNK-600 MG*QD
     Route: 048
     Dates: start: 19980201, end: 20010601
  3. RIBAVIRIN [Suspect]
     Indication: HEPATITIS C
     Dosage: UNK-600 MG*QD
     Route: 048
     Dates: start: 20010601, end: 20010601
  4. INTERFERON ALFA-2B INJECTABLE [Suspect]
     Indication: HEPATITIS C
     Dosage: UNK-3 MIU*
     Dates: start: 19980201, end: 20010601
  5. INTERFERON ALFA-2B INJECTABLE [Suspect]
     Indication: HEPATITIS C
     Dosage: UNK-3 MIU*
     Dates: start: 20010601, end: 20010601
  6. INTERFERON ALFA-2B INJECTABLE [Suspect]
     Indication: HEPATITIS C
     Dosage: UNK-3 MIU*
     Dates: start: 19980201
  7. STAVUDINE [Suspect]
     Indication: HIV INFECTION
     Dosage: UNK-40 MG*BID
     Dates: start: 19960101, end: 19980401
  8. STAVUDINE [Suspect]
     Indication: HIV INFECTION
     Dosage: UNK-40 MG*BID
     Dates: start: 19960101, end: 20010601
  9. STAVUDINE [Suspect]
     Indication: HIV INFECTION
     Dosage: UNK-40 MG*BID
     Dates: start: 20010301, end: 20010601
  10. DIDANOSINE [Suspect]
     Indication: HIV INFECTION
     Dosage: UNK-400 MG*QD
     Dates: start: 19960101, end: 20010101
  11. DIDANOSINE [Suspect]
     Indication: HIV INFECTION
     Dosage: UNK-400 MG*QD
     Dates: start: 19960101, end: 20010601
  12. DIDANOSINE [Suspect]
     Indication: HIV INFECTION
     Dosage: UNK-400 MG*QD
     Dates: start: 20010301, end: 20010601
  13. SAQUINAVIR MESYLATE [Concomitant]
  14. EFAVIRENZ [Concomitant]
  15. TACROLIMUS [Concomitant]
  16. PREDNISONE [Concomitant]

REACTIONS (16)
  - DISEASE RECURRENCE [None]
  - DRUG INEFFECTIVE [None]
  - DRUG TOXICITY [None]
  - ENCEPHALOPATHY [None]
  - HAEMODIALYSIS [None]
  - HEPATIC CIRRHOSIS [None]
  - HEPATIC FAILURE [None]
  - HEPATIC NECROSIS [None]
  - HEPATIC STEATOSIS [None]
  - HEPATITIS C VIRUS [None]
  - HEPATOTOXICITY [None]
  - HYPERLACTACIDAEMIA [None]
  - LIVER TRANSPLANT [None]
  - LIVER TRANSPLANT REJECTION [None]
  - RENAL FAILURE ACUTE [None]
  - THROMBOCYTOPENIA [None]
